FAERS Safety Report 20099048 (Version 1)
Quarter: 2021Q4

REPORT INFORMATION
  Report Type: Spontaneous
  Country: US (occurrence: US)
  Receive Date: 20211122
  Receipt Date: 20211122
  Transmission Date: 20220303
  Serious: No
  Sender: FDA-Public Use
  Company Number: US-009507513-2111USA003557

PATIENT
  Age: 40 Year
  Sex: Male

DRUGS (3)
  1. NOXAFIL [Suspect]
     Active Substance: POSACONAZOLE
     Indication: Pneumonia fungal
     Dosage: UNK
     Route: 048
     Dates: end: 20201028
  2. FOSCARNET [Concomitant]
     Active Substance: FOSCARNET
     Indication: Mucosal inflammation
  3. FOSCARNET [Concomitant]
     Active Substance: FOSCARNET
     Indication: Herpes simplex

REACTIONS (1)
  - Apparent mineralocorticoid excess [Recovered/Resolved]

NARRATIVE: CASE EVENT DATE: 20200101
